FAERS Safety Report 14844923 (Version 2)
Quarter: 2018Q2

REPORT INFORMATION
  Report Type: Spontaneous
  Country: US (occurrence: US)
  Receive Date: 20180504
  Receipt Date: 20180625
  Transmission Date: 20180711
  Serious: No
  Sender: FDA-Public Use
  Company Number: US-B.I. PHARMACEUTICALS,INC./RIDGEFIELD-2018-BI-023155

PATIENT
  Age: 80 Year
  Sex: Male

DRUGS (1)
  1. ATROVENT [Suspect]
     Active Substance: IPRATROPIUM BROMIDE
     Indication: ASTHMA
     Dosage: STRENGTH: 17 MCG;  ADMINISTRATION CORRECT? YES ACTION TAKEN: DOSE NOT CHANGED?FORM- AEROSOL
     Route: 055
     Dates: start: 2010

REACTIONS (4)
  - Nervousness [Unknown]
  - Nausea [Unknown]
  - Eye irritation [Unknown]
  - Dizziness [Unknown]

NARRATIVE: CASE EVENT DATE: 20180426
